FAERS Safety Report 4431952-1 (Version None)
Quarter: 2004Q3

REPORT INFORMATION
  Report Type: 
  Country: None (occurrence: None)
  Receive Date: 20040819
  Receipt Date: 20040806
  Transmission Date: 20050211
  Serious: Yes (Hospitalization, Other)
  Sender: FDA-Public Use
  Company Number: USA-2003-0009609

PATIENT
  Age: 49 Year
  Sex: Male
  Weight: 90.7 kg

DRUGS (15)
  1. OXYCONTIN [Suspect]
     Indication: PAIN
     Dosage: 20 MG, Q12H, ORAL
     Route: 048
  2. DEPAKOTE [Concomitant]
  3. ACTOS [Concomitant]
  4. VIAGRA [Concomitant]
  5. COMBIVENT [Concomitant]
  6. CELEBREX [Concomitant]
  7. GLYBURIDE [Concomitant]
  8. COZAAR [Concomitant]
  9. HYDROCHLOROTHIAZIDE [Concomitant]
  10. TRAZODONE HCL [Concomitant]
  11. ELAVIL [Concomitant]
  12. PEPCID [Concomitant]
  13. RISPERDAL [Concomitant]
  14. EFFEXOR [Concomitant]
  15. SENOKOT [Concomitant]

REACTIONS (17)
  - ASTHENIA [None]
  - BLOOD GLUCOSE INCREASED [None]
  - BLOOD PRESSURE SYSTOLIC INCREASED [None]
  - CARDIOMEGALY [None]
  - CEREBROVASCULAR ACCIDENT [None]
  - CONSTIPATION [None]
  - DEPRESSION [None]
  - DRUG DEPENDENCE [None]
  - DRUG WITHDRAWAL SYNDROME [None]
  - DYSARTHRIA [None]
  - HAEMATOCHEZIA [None]
  - HEMIPARESIS [None]
  - PAIN [None]
  - SLEEP DISORDER [None]
  - SUICIDAL IDEATION [None]
  - SWOLLEN TONGUE [None]
  - TRICUSPID VALVE INCOMPETENCE [None]
